FAERS Safety Report 11866362 (Version 1)
Quarter: 2015Q4

REPORT INFORMATION
  Report Type: Report from Study
  Country: US (occurrence: US)
  Receive Date: 20151223
  Receipt Date: 20151223
  Transmission Date: 20160305
  Serious: No
  Sender: FDA-Public Use
  Company Number: US-AMGEN-USASL2015136059

PATIENT
  Age: 73 Year
  Sex: Female

DRUGS (1)
  1. ENBREL [Suspect]
     Active Substance: ETANERCEPT
     Indication: RHEUMATOID ARTHRITIS
     Dosage: 50 MG, ONCE EVERY 10 DAYS.
     Route: 065

REACTIONS (5)
  - Intentional product misuse [Unknown]
  - Joint range of motion decreased [Unknown]
  - Foot deformity [Unknown]
  - Periarthritis [Unknown]
  - Gait disturbance [Unknown]
